FAERS Safety Report 7917203-1 (Version None)
Quarter: 2011Q4

REPORT INFORMATION
  Report Type: 
  Country: None (occurrence: None)
  Receive Date: 20111116
  Receipt Date: 20111108
  Transmission Date: 20120403
  Serious: Yes (Other)
  Sender: FDA-Public Use
  Company Number: DE-ROCHE-1011303

PATIENT
  Age: 10 Year
  Sex: Female
  Weight: 37 kg

DRUGS (1)
  1. TAMIFLU [Suspect]
     Indication: INFLUENZA B VIRUS TEST POSITIVE
     Route: 048
     Dates: start: 20110215, end: 20110217

REACTIONS (1)
  - SYNCOPE [None]
